FAERS Safety Report 5217033-8 (Version None)
Quarter: 2007Q1

REPORT INFORMATION
  Report Type: 
  Country: None (occurrence: None)
  Receive Date: 20070119
  Receipt Date: 20070111
  Transmission Date: 20070707
  Serious: Yes (Hospitalization, Other)
  Sender: FDA-Public Use
  Company Number: GXKR2007GB00754

PATIENT
  Age: 55 Year
  Sex: 0
  Weight: 90 kg

DRUGS (3)
  1. ASPIRIN [Suspect]
     Indication: ANGIOPLASTY
     Dosage: 75 MG, ORAL
     Route: 048
     Dates: start: 20051228
  2. CLOPIDOGREL [Suspect]
     Indication: ANGIOPLASTY
     Dosage: 75 MG, ORAL
     Route: 048
     Dates: start: 20051228
  3. ATORVASTATIN CALCIUM [Concomitant]

REACTIONS (2)
  - EPISTAXIS [None]
  - SYNCOPE [None]
